FAERS Safety Report 21985567 (Version 2)
Quarter: 2023Q1

REPORT INFORMATION
  Report Type: Spontaneous
  Country: US (occurrence: US)
  Receive Date: 20230213
  Receipt Date: 20230224
  Transmission Date: 20230417
  Serious: No
  Sender: FDA-Public Use
  Company Number: US-PFIZER INC-202300063741

PATIENT
  Sex: Female

DRUGS (1)
  1. PAXLOVID [Suspect]
     Active Substance: NIRMATRELVIR\RITONAVIR
     Indication: COVID-19 treatment
     Dosage: UNK

REACTIONS (6)
  - Gastrooesophageal reflux disease [Unknown]
  - Condition aggravated [Unknown]
  - Malaise [Unknown]
  - Insomnia [Unknown]
  - Decreased appetite [Unknown]
  - Dyspepsia [Unknown]
